FAERS Safety Report 9857439 (Version 1)
Quarter: 2014Q1

REPORT INFORMATION
  Report Type: Report from Study
  Country: US (occurrence: US)
  Receive Date: 20140131
  Receipt Date: 20140131
  Transmission Date: 20141002
  Serious: Yes (Other)
  Sender: FDA-Public Use
  Company Number: US-ROCHE-1341156

PATIENT
  Age: 59 Year
  Sex: Female
  Weight: 59.02 kg

DRUGS (8)
  1. OMALIZUMAB [Suspect]
     Indication: URTICARIA
     Route: 058
     Dates: start: 20140124
  2. PREDNISONE [Concomitant]
     Indication: URTICARIA
     Route: 048
     Dates: start: 201307, end: 20140125
  3. ALLEGRA [Concomitant]
     Indication: URTICARIA
     Route: 048
     Dates: start: 2013
  4. ALLEGRA [Concomitant]
     Indication: HYPERSENSITIVITY
  5. ZYRTEC [Concomitant]
     Indication: URTICARIA
     Route: 048
  6. ZYRTEC [Concomitant]
     Indication: HYPERSENSITIVITY
  7. SYNTHROID [Concomitant]
     Route: 048
  8. COZAAR [Concomitant]
     Route: 048

REACTIONS (5)
  - Fatigue [Not Recovered/Not Resolved]
  - Sinus headache [Not Recovered/Not Resolved]
  - Nausea [Not Recovered/Not Resolved]
  - Dizziness [Not Recovered/Not Resolved]
  - Off label use [Unknown]
